FAERS Safety Report 10684170 (Version 6)
Quarter: 2018Q3

REPORT INFORMATION
  Report Type: Report from Study
  Country: JP (occurrence: JP)
  Receive Date: 20141231
  Receipt Date: 20180828
  Transmission Date: 20181010
  Serious: Yes (Hospitalization)
  Sender: FDA-Public Use
  Company Number: JP-PFIZER INC-2014316990

PATIENT
  Age: 67 Year
  Sex: Female
  Weight: 52 kg

DRUGS (16)
  1. ZOPICLONE [Concomitant]
     Active Substance: ZOPICLONE
     Indication: INSOMNIA
     Dosage: UNK
     Route: 048
     Dates: start: 20141015
  2. ENALAPRIL MALEATE. [Concomitant]
     Active Substance: ENALAPRIL MALEATE
     Indication: CARDIAC FAILURE
     Dosage: UNK
     Dates: start: 20141015
  3. MAGNESIUM OXIDE HEAVY [Suspect]
     Active Substance: MAGNESIUM OXIDE
     Dosage: UNK
     Route: 048
     Dates: start: 20141029, end: 20141104
  4. GLUCOSE [Concomitant]
     Active Substance: DEXTROSE
     Indication: FLUID REPLACEMENT
     Dosage: UNK
     Route: 042
     Dates: start: 20141013, end: 20141117
  5. ELIQUIS [Suspect]
     Active Substance: APIXABAN
     Indication: THROMBOSIS PROPHYLAXIS
     Dosage: UNK
     Route: 048
     Dates: start: 20141015, end: 20141104
  6. MAGNESIUM OXIDE HEAVY [Suspect]
     Active Substance: MAGNESIUM OXIDE
     Dosage: UNK
     Dates: start: 20141121
  7. CARVEDILOL. [Concomitant]
     Active Substance: CARVEDILOL
     Indication: CARDIAC FAILURE
     Dosage: UNK
     Route: 048
     Dates: start: 20141023
  8. EPLERENONE. [Suspect]
     Active Substance: EPLERENONE
     Indication: CARDIAC FAILURE ACUTE
     Dosage: 25 MG, 1X/DAY
     Dates: start: 20141015, end: 20141021
  9. EPLERENONE. [Suspect]
     Active Substance: EPLERENONE
     Dosage: 25 MG, ALTERNATE DAY
     Dates: start: 20141022, end: 20141104
  10. AZOSEMIDE [Concomitant]
     Active Substance: AZOSEMIDE
     Indication: CARDIAC FAILURE
     Dosage: UNK
     Route: 048
     Dates: start: 20141014
  11. ACETAMINOPHEN. [Concomitant]
     Active Substance: ACETAMINOPHEN
     Indication: ANALGESIC THERAPY
  12. PIMOBENDAN [Concomitant]
     Active Substance: PIMOBENDAN
     Indication: CARDIAC FAILURE
     Dosage: UNK
     Route: 048
     Dates: start: 20141017
  13. DOBUTAMINE HYDROCHLORIDE. [Concomitant]
     Active Substance: DOBUTAMINE HYDROCHLORIDE
     Indication: CARDIAC FAILURE
     Dosage: UNK
     Route: 042
     Dates: start: 20141013, end: 20141112
  14. SENNOSIDE A+B CALCIUM [Concomitant]
     Active Substance: SENNOSIDES A AND B
     Indication: CONSTIPATION
     Dosage: UNK
     Route: 048
     Dates: start: 20141019
  15. ANCARON [Suspect]
     Active Substance: AMIODARONE HYDROCHLORIDE
     Indication: ARRHYTHMIA
     Dosage: 100 MG, UNK
     Route: 048
     Dates: start: 20141017, end: 20141104
  16. ACETAMINOPHEN. [Concomitant]
     Active Substance: ACETAMINOPHEN
     Indication: ANTIPYRESIS
     Dosage: UNK
     Route: 048
     Dates: start: 20141015, end: 20141107

REACTIONS (1)
  - Eosinophilic pneumonia [Recovered/Resolved]

NARRATIVE: CASE EVENT DATE: 20141026
